FAERS Safety Report 5907487-3 (Version None)
Quarter: 2008Q4

REPORT INFORMATION
  Report Type: 
  Country: None (occurrence: None)
  Receive Date: 20081003
  Receipt Date: 20080930
  Transmission Date: 20090506
  Serious: Yes (Death, Other)
  Sender: FDA-Public Use
  Company Number: US-CELGENEUS-163-21880-08080597

PATIENT
  Sex: Male

DRUGS (2)
  1. REVLIMID [Suspect]
     Indication: LYMPHOMA
     Route: 048
     Dates: start: 20080314
  2. REVLIMID [Suspect]
     Route: 048
     Dates: start: 20080501, end: 20080601

REACTIONS (2)
  - NEOPLASM PROGRESSION [None]
  - PANCYTOPENIA [None]
